FAERS Safety Report 13422152 (Version 3)
Quarter: 2017Q2

REPORT INFORMATION
  Report Type: Report from Study
  Country: DE (occurrence: DE)
  Receive Date: 20170410
  Receipt Date: 20170525
  Transmission Date: 20170830
  Serious: Yes (Hospitalization)
  Sender: FDA-Public Use
  Company Number: DE-ROCHE-1864108

PATIENT
  Age: 37 Year
  Sex: Male
  Weight: 75 kg

DRUGS (34)
  1. CIPROFLOXACIN. [Concomitant]
     Active Substance: CIPROFLOXACIN
     Route: 065
     Dates: start: 20120827, end: 20120902
  2. FAMPYRA [Concomitant]
     Active Substance: DALFAMPRIDINE
     Indication: GAIT DISTURBANCE
     Route: 065
     Dates: end: 20121016
  3. NIFURANTIN [Concomitant]
     Route: 065
     Dates: start: 20131127, end: 20150102
  4. OCRELIZUMAB [Suspect]
     Active Substance: OCRELIZUMAB
     Indication: PRIMARY PROGRESSIVE MULTIPLE SCLEROSIS
     Dosage: SUBSEQUENT DOSES TAKEN ON?02/MAY/2012, 01/OCT/2012, 15/OCT2012, 18/MAR/2013, 03/APR/2013, 04/SEP/201
     Route: 042
     Dates: start: 20120416
  5. MYOCHOLINE [Concomitant]
     Active Substance: BETHANECHOL CHLORIDE
     Route: 065
     Dates: start: 20150123, end: 20150521
  6. PARACETAMOL [Concomitant]
     Active Substance: ACETAMINOPHEN
     Indication: PREMEDICATION
     Route: 065
     Dates: start: 20130904, end: 20130904
  7. CIPROFLOXACIN. [Concomitant]
     Active Substance: CIPROFLOXACIN
     Indication: VIRAL UPPER RESPIRATORY TRACT INFECTION
     Route: 065
     Dates: start: 20120911, end: 20120917
  8. TAMSULOSIN [Concomitant]
     Active Substance: TAMSULOSIN
     Indication: MICTURITION URGENCY
     Route: 065
     Dates: end: 20120428
  9. MYOCHOLINE [Concomitant]
     Active Substance: BETHANECHOL CHLORIDE
     Route: 065
     Dates: start: 20150522, end: 20160104
  10. ALFUZOSIN [Concomitant]
     Active Substance: ALFUZOSIN
     Indication: MICTURITION URGENCY
     Route: 065
     Dates: start: 20120428, end: 20121105
  11. CICLOPIROX OLAMINE. [Concomitant]
     Active Substance: CICLOPIROX OLAMINE
     Indication: FUNGAL INFECTION
     Route: 065
     Dates: start: 20150127, end: 20150210
  12. NIFURANTIN [Concomitant]
     Route: 065
     Dates: start: 20150202, end: 20150522
  13. TOLPERISONE [Concomitant]
     Active Substance: TOLPERISONE
     Indication: MUSCLE SPASTICITY
     Route: 065
     Dates: end: 20121204
  14. URBASON [Concomitant]
     Active Substance: METHYLPREDNISOLONE
     Indication: MULTIPLE SCLEROSIS RELAPSE
     Route: 065
     Dates: start: 20140917, end: 20140919
  15. CIALIS [Concomitant]
     Active Substance: TADALAFIL
     Indication: SEXUAL DYSFUNCTION
     Route: 065
     Dates: start: 20160101
  16. METHYLPREDNISOLONE. [Concomitant]
     Active Substance: METHYLPREDNISOLONE
     Indication: PREMEDICATION
     Route: 065
     Dates: start: 20121126, end: 20121128
  17. CETIRIZINE [Concomitant]
     Active Substance: CETIRIZINE HYDROCHLORIDE
     Indication: SEASONAL ALLERGY
     Route: 065
  18. CRANBERRY. [Concomitant]
     Active Substance: CRANBERRY
  19. AMANTADIN [Concomitant]
     Active Substance: AMANTADINE
     Route: 065
     Dates: start: 20121204, end: 20130407
  20. CLEXANE [Concomitant]
     Active Substance: ENOXAPARIN SODIUM
     Indication: MULTIPLE SCLEROSIS RELAPSE
     Route: 065
     Dates: start: 20140917, end: 20140920
  21. LOPEDIUM [Concomitant]
     Active Substance: LOPERAMIDE
     Route: 065
  22. PANTOZOL [Concomitant]
     Active Substance: PANTOPRAZOLE SODIUM
     Indication: MULTIPLE SCLEROSIS RELAPSE
     Route: 065
     Dates: start: 20140917, end: 20140920
  23. OCRELIZUMAB [Suspect]
     Active Substance: OCRELIZUMAB
     Indication: PRIMARY PROGRESSIVE MULTIPLE SCLEROSIS
     Dosage: SUBSEQUENT DOSES TAKEN ON 05/JA/N2016, 06/JUN/2016, 20/JUN/2016 AND  21/NOV/2016?LAST DOSE PRIOR TO
     Route: 042
     Dates: start: 20151222
  24. MYOCHOLINE [Concomitant]
     Active Substance: BETHANECHOL CHLORIDE
     Indication: MICTURITION URGENCY
     Dosage: 6X1 TOTAL DAILY DOSE UNIT
     Route: 065
     Dates: start: 20150522, end: 20160104
  25. MYOCHOLINE [Concomitant]
     Active Substance: BETHANECHOL CHLORIDE
     Route: 065
     Dates: start: 20160105
  26. MYOCHOLINE [Concomitant]
     Active Substance: BETHANECHOL CHLORIDE
     Route: 065
     Dates: start: 20161206
  27. METHYLPREDNISOLONE. [Concomitant]
     Active Substance: METHYLPREDNISOLONE
     Dosage: TAKEN PRIOR TO OCREIZUMAB INFUSION?SUBSEQUENT DOSES TAKEN ON 02/MAY/2012, 01/OCT/2012, 15/OCT2012, 1
     Route: 065
     Dates: start: 20120416
  28. CEFUROX [Concomitant]
     Active Substance: CEFUROXIME AXETIL
     Indication: VIRAL UPPER RESPIRATORY TRACT INFECTION
     Route: 065
     Dates: start: 20150320, end: 20150327
  29. VIAGRA [Concomitant]
     Active Substance: SILDENAFIL CITRATE
     Dosage: INDICATION: LYSEXUAL DYSUNCTION
     Route: 065
     Dates: start: 20161222
  30. MYOCHOLINE [Concomitant]
     Active Substance: BETHANECHOL CHLORIDE
     Route: 065
     Dates: start: 20140220, end: 20150122
  31. FENISTIL (GERMANY) [Concomitant]
     Indication: PREMEDICATION
     Dosage: TAKEN PRIOR TO OCREIZUMAB INFUSION?SUBSEQUENT DOSES TAKEN ON 02/MAY/2012, 01/OCT/2012, 15/OCT2012, 1
     Route: 065
     Dates: start: 20120416
  32. PARACETAMOL [Concomitant]
     Active Substance: ACETAMINOPHEN
     Route: 065
     Dates: start: 20130918, end: 20130918
  33. BACLOFEN. [Concomitant]
     Active Substance: BACLOFEN
     Route: 065
     Dates: start: 20140918, end: 20151223
  34. VESIKUR [Concomitant]
     Active Substance: SOLIFENACIN SUCCINATE
     Indication: MICTURITION URGENCY
     Route: 065
     Dates: start: 20120428, end: 20130407

REACTIONS (1)
  - Urinary tract infection [Recovered/Resolved with Sequelae]

NARRATIVE: CASE EVENT DATE: 20161129
